FAERS Safety Report 24014882 (Version 2)
Quarter: 2024Q3

REPORT INFORMATION
  Report Type: Report from Study
  Country: US (occurrence: US)
  Receive Date: 20240626
  Receipt Date: 20240704
  Transmission Date: 20241017
  Serious: Yes (Death)
  Sender: ROCHE
  Company Number: US-ROCHE-10000008141

PATIENT
  Age: 77 Year
  Sex: Female

DRUGS (2)
  1. ESBRIET [Suspect]
     Active Substance: PIRFENIDONE
     Indication: Idiopathic pulmonary fibrosis
     Dosage: TAKE 1 TABLET (801MG) BY MOUTH 3 TIMES A DAY WITH MEALS
     Route: 048
  2. ESBRIET [Suspect]
     Active Substance: PIRFENIDONE
     Route: 048

REACTIONS (1)
  - Death [Fatal]
